FAERS Safety Report 12272135 (Version 1)
Quarter: 2016Q2

REPORT INFORMATION
  Report Type: Report from Study
  Country: FR (occurrence: FR)
  Receive Date: 20160415
  Receipt Date: 20160415
  Transmission Date: 20160815
  Serious: Yes (Other)
  Sender: FDA-Public Use
  Company Number: FR-PFIZER INC-2016103641

PATIENT
  Age: 69 Year
  Sex: Male
  Weight: 75 kg

DRUGS (5)
  1. CRIZOTINIB [Suspect]
     Active Substance: CRIZOTINIB
     Indication: GLIOBLASTOMA
     Dosage: 250 MG, UNK
     Route: 048
     Dates: start: 20160201, end: 20160213
  2. MANNITOL. [Concomitant]
     Active Substance: MANNITOL
     Dosage: UNK
     Route: 048
     Dates: start: 2015
  3. SOLU-MEDROL [Concomitant]
     Active Substance: METHYLPREDNISOLONE SODIUM SUCCINATE
     Indication: NEOPLASM MALIGNANT
     Dosage: UNK
     Route: 048
     Dates: start: 2015
  4. SEROPLEX [Concomitant]
     Active Substance: ESCITALOPRAM OXALATE
     Indication: DEPRESSION
     Dosage: UNK
     Route: 048
     Dates: start: 20160205
  5. SOLUPRED /00016201/ [Concomitant]
     Active Substance: PREDNISOLONE
     Dosage: UNK
     Route: 048
     Dates: start: 2015

REACTIONS (1)
  - Erythema multiforme [Recovered/Resolved]

NARRATIVE: CASE EVENT DATE: 20160215
